FAERS Safety Report 6216033-9 (Version None)
Quarter: 2009Q2

REPORT INFORMATION
  Report Type: 
  Country: None (occurrence: None)
  Receive Date: 20090605
  Receipt Date: 20090526
  Transmission Date: 20091009
  Serious: Yes (Hospitalization, Disabling, Other)
  Sender: FDA-Public Use
  Company Number: PHHO2005JP01998

PATIENT
  Sex: Female
  Weight: 50 kg

DRUGS (13)
  1. GLEEVEC [Suspect]
     Indication: GASTROINTESTINAL STROMAL TUMOUR
     Dosage: 400 MG, QD
     Route: 048
     Dates: start: 20050121, end: 20050201
  2. GLEEVEC [Suspect]
     Dosage: 400 MG, QD
     Route: 048
     Dates: start: 20050308, end: 20070415
  3. GLEEVEC [Suspect]
     Dosage: 400 MG, QD
     Route: 048
     Dates: start: 20070703, end: 20080623
  4. GLEEVEC [Suspect]
     Dosage: 400 MG DAILY
     Route: 048
     Dates: start: 20080630, end: 20080904
  5. GLEEVEC [Suspect]
     Dosage: 400 MG DAILY
     Route: 048
     Dates: start: 20081110, end: 20090105
  6. GLEEVEC [Suspect]
     Dosage: 400 MG DAILY
     Route: 048
     Dates: start: 20090126, end: 20090131
  7. OMEPRAL [Concomitant]
     Indication: GASTRITIS
     Dosage: 40 MG
     Route: 042
     Dates: start: 20050122, end: 20050124
  8. GASTER [Concomitant]
     Indication: GASTRITIS
     Dosage: 40 MG
     Route: 042
     Dates: start: 20050120, end: 20050121
  9. GASTER [Concomitant]
     Indication: GASTRIC ULCER
     Dosage: 40 MG
     Route: 048
     Dates: start: 20050223
  10. SUCRALFATE [Concomitant]
     Indication: GASTRIC ULCER
     Dosage: 3 MG
     Route: 048
     Dates: start: 20050223
  11. MAALOX [Concomitant]
     Indication: GASTRIC ULCER
     Dosage: 3.6 MG
     Route: 048
     Dates: start: 20050223
  12. LASIX [Concomitant]
     Indication: OEDEMA
     Dosage: 20 MG
     Route: 048
     Dates: start: 20050328
  13. SLOW-K [Concomitant]
     Indication: HYPOKALAEMIA
     Dosage: 600 MG
     Route: 048
     Dates: start: 20050620

REACTIONS (14)
  - ALOPECIA [None]
  - BLOOD CREATINE PHOSPHOKINASE INCREASED [None]
  - DRUG RESISTANCE [None]
  - DRUG TOLERANCE [None]
  - GASTRIC CANCER [None]
  - GASTRIC ULCER HAEMORRHAGE [None]
  - HAEMATEMESIS [None]
  - HAEMOGLOBIN DECREASED [None]
  - ILEUS [None]
  - MALIGNANT NEOPLASM PROGRESSION [None]
  - NEPHRECTOMY [None]
  - OEDEMA [None]
  - RENAL CANCER [None]
  - SURGERY [None]
